FAERS Safety Report 18656888 (Version 1)
Quarter: 2020Q4

REPORT INFORMATION
  Report Type: Spontaneous
  Country: US (occurrence: US)
  Receive Date: 20201224
  Receipt Date: 20201224
  Transmission Date: 20210114
  Serious: No
  Sender: FDA-Public Use
  Company Number: US-ELI_LILLY_AND_COMPANY-US202012010815

PATIENT
  Sex: Female

DRUGS (1)
  1. TRULICITY [Suspect]
     Active Substance: DULAGLUTIDE
     Indication: PRODUCT USED FOR UNKNOWN INDICATION
     Dosage: UNK, UNKNOWN
     Route: 065
     Dates: start: 2018

REACTIONS (7)
  - Abdominal distension [Unknown]
  - Gastrointestinal mucosal disorder [Unknown]
  - Gastrointestinal motility disorder [Unknown]
  - Discomfort [Unknown]
  - Dyspepsia [Unknown]
  - Weight decreased [Unknown]
  - Gastrointestinal tract mucosal discolouration [Unknown]
